FAERS Safety Report 4605106-X (Version None)
Quarter: 2005Q2

REPORT INFORMATION
  Report Type: 
  Country: None (occurrence: None)
  Receive Date: 20050214
  Receipt Date: 20050103
  Transmission Date: 20051028
  Serious: No
  Sender: FDA-Public Use
  Company Number: USA050187373

PATIENT
  Sex: Male

DRUGS (1)
  1. CIALIS [Suspect]

REACTIONS (3)
  - INSOMNIA [None]
  - NASAL CONGESTION [None]
  - THERAPEUTIC RESPONSE DECREASED [None]
